FAERS Safety Report 13157399 (Version 5)
Quarter: 2020Q2

REPORT INFORMATION
  Report Type: Report from Study
  Country: US (occurrence: US)
  Receive Date: 20170127
  Receipt Date: 20200520
  Transmission Date: 20200713
  Serious: Yes (Other)
  Sender: FDA-Public Use
  Company Number: PHHY2015US099053

PATIENT
  Age: 54 Year
  Sex: Female

DRUGS (1)
  1. GILENYA [Suspect]
     Active Substance: FINGOLIMOD HYDROCHLORIDE
     Indication: MULTIPLE SCLEROSIS
     Dosage: UNK, QD
     Route: 048

REACTIONS (6)
  - Lymphocyte count decreased [Unknown]
  - White blood cell count decreased [Unknown]
  - Melanocytic naevus [Not Recovered/Not Resolved]
  - Blood cholesterol increased [Unknown]
  - Weight decreased [Unknown]
  - Benign neoplasm [Not Recovered/Not Resolved]

NARRATIVE: CASE EVENT DATE: 20150220
